FAERS Safety Report 15660596 (Version 7)
Quarter: 2020Q2

REPORT INFORMATION
  Report Type: Spontaneous
  Country: JP (occurrence: JP)
  Receive Date: 20181127
  Receipt Date: 20200529
  Transmission Date: 20200713
  Serious: Yes (Death, Hospitalization, Other)
  Sender: FDA-Public Use
  Company Number: JP-ASTRAZENECA-2018SF38500

PATIENT
  Age: 73 Year
  Sex: Male
  Weight: 58 kg

DRUGS (14)
  1. ISOTONIC SODIUM CHLORIDE SOLUTION [Concomitant]
     Active Substance: SODIUM CHLORIDE
     Dosage: 100 ML, PERIPHERAL ROUTE, INTRAVENOUS INJECTION VIA A BYPASS, DOSE UNKNOWN
     Route: 050
  2. CYCLOPHOSPHAMIDE HYDRATE [Suspect]
     Active Substance: CYCLOPHOSPHAMIDE
     Indication: LUNG DISORDER
     Route: 048
     Dates: start: 20181029, end: 20181109
  3. TAGRISSO [Suspect]
     Active Substance: OSIMERTINIB
     Indication: NON-SMALL CELL LUNG CANCER
     Dosage: 80MG, EVERY DAY, 30 MINUTES AFTER LUNCH
     Route: 048
     Dates: start: 20180915, end: 20181008
  4. SEISHOKU [Concomitant]
     Active Substance: SODIUM CHLORIDE
     Dosage: 1 KIT, INTRAVENOUS INJECTION IMMEDIATELY, DOSE UNKNOWN
     Route: 041
  5. YD SOLITA-T NO.3 [Concomitant]
     Dosage: 500 ML, INTRAVENOUS INJECTION UNTIL 11:00, DOSE UNKNOWN
     Route: 041
  6. ISOTONIC SODIUM CHLORIDE SOLUTION [Concomitant]
     Active Substance: SODIUM CHLORIDE
     Dosage: 500 ML, INTRAVENOUS INJECTION VIA A PERIPHERAL ROUTE, DOSE UNKNOWN
     Route: 050
  7. MEROPENEM. [Concomitant]
     Active Substance: MEROPENEM
     Dosage: 2V, INTRAVENOUS INJECTION IMMEDIATELY, DOSE UNKNOWN
     Route: 041
  8. MEROPENEM. [Concomitant]
     Active Substance: MEROPENEM
     Dosage: 2V, INTRAVENOUS INJECTION AT 22:00, DOSE UNKNOWN
     Route: 041
  9. SEISHOKU [Concomitant]
     Active Substance: SODIUM CHLORIDE
     Dosage: 1 KIT, INTRAVENOUS INJECTION AT 22:00, DOSE UNKNOWN
     Route: 041
  10. CYCLOPHOSPHAMIDE HYDRATE [Suspect]
     Active Substance: CYCLOPHOSPHAMIDE
     Indication: LUNG DISORDER
     Route: 048
     Dates: start: 20181026, end: 20181028
  11. BETAMETHASONE. [Concomitant]
     Active Substance: BETAMETHASONE
     Indication: LYMPHANGIOSIS CARCINOMATOSA
     Route: 048
     Dates: start: 20180907, end: 20180915
  12. CYCLOPHOSPHAMIDE HYDRATE [Suspect]
     Active Substance: CYCLOPHOSPHAMIDE
     Indication: LUNG DISORDER
     Route: 048
     Dates: start: 20181110, end: 20181112
  13. SOLU-MEDROL [Suspect]
     Active Substance: METHYLPREDNISOLONE SODIUM SUCCINATE
     Dosage: PERIPHERAL ROUTE, INTRAVENOUS INJECTION VIA A BYPASS, DOSE UNKNOWN
     Route: 042
  14. HIRUDOID [Concomitant]
     Active Substance: GLYCOSAMINOGLYCANS
     Indication: RASH
     Dosage: UNKNKOWN DOSE, TWO TIMES A DAY, TWO TUBE, TO CHEST, DOSE UNKNOWN
     Route: 062
     Dates: start: 20180928

REACTIONS (12)
  - Lung disorder [Fatal]
  - Haematochezia [Fatal]
  - Hypotension [Fatal]
  - Insomnia [Recovering/Resolving]
  - Hypoalbuminaemia [Fatal]
  - Constipation [Recovered/Resolved]
  - Restlessness [Recovering/Resolving]
  - Tachycardia [Recovered/Resolved]
  - Drug-induced liver injury [Recovered/Resolved]
  - Pneumonia [Unknown]
  - Pneumonia [Recovered/Resolved]
  - Pyrexia [Recovered/Resolved]

NARRATIVE: CASE EVENT DATE: 20181008
